FAERS Safety Report 10041955 (Version 1)
Quarter: 2014Q1

REPORT INFORMATION
  Report Type: Spontaneous
  Country: GB (occurrence: GB)
  Receive Date: 20140327
  Receipt Date: 20140327
  Transmission Date: 20141002
  Serious: Yes (Hospitalization)
  Sender: FDA-Public Use
  Company Number: GB-JNJFOC-20140314135

PATIENT
  Age: 72 Year
  Sex: Female

DRUGS (6)
  1. NICORETTE INHALER [Suspect]
     Route: 065
  2. NICORETTE INHALER [Suspect]
     Indication: SMOKING CESSATION THERAPY
     Route: 065
  3. ASPIRIN [Concomitant]
     Indication: COAGULOPATHY
     Route: 065
  4. ISOSORBIDE [Concomitant]
     Indication: BLOOD PRESSURE ABNORMAL
     Route: 065
  5. MEDICATION FOR CHOLESTEROL [Concomitant]
     Indication: BLOOD CHOLESTEROL ABNORMAL
     Route: 065
  6. STOMACH AGENT [Concomitant]
     Indication: GASTRIC DISORDER
     Route: 065

REACTIONS (3)
  - Nerve injury [Unknown]
  - Headache [Unknown]
  - Speech disorder [Unknown]
